FAERS Safety Report 4845881-2 (Version None)
Quarter: 2005Q4

REPORT INFORMATION
  Report Type: 
  Country: None (occurrence: None)
  Receive Date: 20051201
  Receipt Date: 20051122
  Transmission Date: 20060501
  Serious: Yes (Other)
  Sender: FDA-Public Use
  Company Number: 2005-09-1746

PATIENT
  Age: 34 Year
  Sex: Male
  Weight: 76 kg

DRUGS (4)
  1. PEG-INTRON [Suspect]
     Indication: HEPATITIS C
     Dosage: 150 MCG QW SUBCUTANEOUS
     Route: 058
     Dates: start: 20050330, end: 20050924
  2. REBETOL [Suspect]
     Indication: HEPATITIS C
     Dosage: SEE IMAGE
     Route: 048
     Dates: start: 20050330, end: 20050901
  3. REBETOL [Suspect]
     Indication: HEPATITIS C
     Dosage: SEE IMAGE
     Route: 048
     Dates: start: 20050330, end: 20050924
  4. REBETOL [Suspect]
     Indication: HEPATITIS C
     Dosage: SEE IMAGE
     Route: 048
     Dates: start: 20050901, end: 20050924

REACTIONS (9)
  - ANGIOTENSIN CONVERTING ENZYME INCREASED [None]
  - APTYALISM [None]
  - EYE PAIN [None]
  - HILAR LYMPHADENOPATHY [None]
  - LYMPHOMA [None]
  - SARCOIDOSIS [None]
  - SIALOADENITIS [None]
  - UVEITIS [None]
  - WEIGHT DECREASED [None]
